FAERS Safety Report 17878725 (Version 8)
Quarter: 2020Q4

REPORT INFORMATION
  Report Type: Spontaneous
  Country: DE (occurrence: DE)
  Receive Date: 20200610
  Receipt Date: 20201223
  Transmission Date: 20210113
  Serious: Yes (Hospitalization, Disabling, Other)
  Sender: FDA-Public Use
  Company Number: DE-SA-2020SA143968

PATIENT

DRUGS (7)
  1. FAMPYRA [Concomitant]
     Active Substance: DALFAMPRIDINE
     Indication: MULTIPLE SCLEROSIS
     Dosage: 10 MG, BID
     Route: 048
     Dates: start: 201512
  2. LEMTRADA [Suspect]
     Active Substance: ALEMTUZUMAB
     Indication: MULTIPLE SCLEROSIS
     Dosage: UNK UNK, QD
     Route: 065
     Dates: start: 20190820, end: 20190822
  3. LEMTRADA [Suspect]
     Active Substance: ALEMTUZUMAB
     Dosage: UNK UNK, QD
     Route: 041
     Dates: start: 20180820, end: 20180824
  4. TAMSULOSIN [Concomitant]
     Active Substance: TAMSULOSIN
     Indication: MULTIPLE SCLEROSIS
     Dosage: UNK
     Route: 048
  5. BACLOFEN. [Concomitant]
     Active Substance: BACLOFEN
     Indication: MULTIPLE SCLEROSIS
     Dosage: 10 MG, TID
     Route: 048
     Dates: start: 201701
  6. FAMPYRA [Concomitant]
     Active Substance: DALFAMPRIDINE
     Indication: GAIT DISTURBANCE
  7. BACLOFEN. [Concomitant]
     Active Substance: BACLOFEN
     Indication: MUSCLE SPASTICITY

REACTIONS (21)
  - Asthenia [Not Recovered/Not Resolved]
  - Immune thrombocytopenia [Recovering/Resolving]
  - Monocyte percentage increased [Unknown]
  - General physical health deterioration [Unknown]
  - Platelet count decreased [Recovering/Resolving]
  - White blood cell count decreased [Unknown]
  - Blood thyroid stimulating hormone increased [Unknown]
  - Splenic haematoma [Unknown]
  - Blood bilirubin increased [Not Recovered/Not Resolved]
  - Leukopenia [Unknown]
  - Injury [Unknown]
  - Haematocrit decreased [Unknown]
  - High density lipoprotein decreased [Unknown]
  - Autoimmune haemolytic anaemia [Recovering/Resolving]
  - Reticulocyte percentage increased [Unknown]
  - Haemoglobin decreased [Not Recovered/Not Resolved]
  - Abdominal pain [Unknown]
  - Red blood cell count decreased [Unknown]
  - Alanine aminotransferase increased [Unknown]
  - Acute hepatic failure [Recovering/Resolving]
  - Fall [Unknown]

NARRATIVE: CASE EVENT DATE: 2020
